FAERS Safety Report 19939700 (Version 1)
Quarter: 2021Q4

REPORT INFORMATION
  Report Type: 
  Country: US (occurrence: US)
  Receive Date: 20211012
  Receipt Date: 20211012
  Transmission Date: 20220303
  Serious: No
  Sender: FDA-Public Use
  Company Number: US-C B FLEET CO INC-202101-US-000049

PATIENT
  Sex: Female

DRUGS (1)
  1. MONISTAT 3 COMBINATION PACK 3-DAY IN PRE-FILLED APPLICATORS [Suspect]
     Active Substance: MICONAZOLE NITRATE
     Indication: Product used for unknown indication
     Dosage: I USED MONISTAT 3 LAST WEEK

REACTIONS (6)
  - Product used for unknown indication [None]
  - Vulvovaginal pain [Not Recovered/Not Resolved]
  - Vaginal mucosal blistering [Not Recovered/Not Resolved]
  - Vulvovaginal burning sensation [Unknown]
  - Vulvovaginal pruritus [Unknown]
  - Vulvovaginal swelling [Unknown]
